FAERS Safety Report 15540957 (Version 1)
Quarter: 2018Q4

REPORT INFORMATION
  Report Type: Report from Study
  Country: CN (occurrence: CN)
  Receive Date: 20181023
  Receipt Date: 20181023
  Transmission Date: 20190205
  Serious: Yes (Other)
  Sender: FDA-Public Use
  Company Number: CN-ROCHE-2199191

PATIENT

DRUGS (2)
  1. BEVACIZUMAB. [Suspect]
     Active Substance: BEVACIZUMAB
     Indication: HEPATOCELLULAR CARCINOMA
     Dosage: TRANSCATHETER INFUSION
     Route: 013
  2. OXALIPLATIN. [Suspect]
     Active Substance: OXALIPLATIN
     Indication: HEPATOCELLULAR CARCINOMA
     Route: 050

REACTIONS (7)
  - Off label use [Unknown]
  - Intentional product use issue [Unknown]
  - Transaminases increased [Unknown]
  - Post embolisation syndrome [Unknown]
  - Nausea [Unknown]
  - Vomiting [Recovered/Resolved]
  - Hyperbilirubinaemia [Unknown]
